FAERS Safety Report 8023867-7 (Version None)
Quarter: 2012Q1

REPORT INFORMATION
  Report Type: 
  Country: None (occurrence: None)
  Receive Date: 20120105
  Receipt Date: 20120103
  Transmission Date: 20120608
  Serious: Yes (Other)
  Sender: FDA-Public Use
  Company Number: US-PFIZER INC-2011260551

PATIENT
  Sex: Female

DRUGS (10)
  1. LISINOPRIL [Suspect]
     Dosage: UNK
  2. AMOXICILLIN [Concomitant]
     Dosage: UNK
  3. NASONEX [Concomitant]
     Indication: HYPERSENSITIVITY
     Dosage: UNK
  4. BENADRYL [Suspect]
     Dosage: UNK
  5. LEXAPRO [Suspect]
     Dosage: UNK
  6. CELEBREX [Concomitant]
     Indication: NECK PAIN
     Dosage: UNK
  7. ALLEGRA-D 12 HOUR [Concomitant]
     Indication: HYPERSENSITIVITY
     Dosage: UNK
  8. PRINZIDE [Suspect]
     Indication: HYPERTENSION
     Dosage: 20-12.5 DAILY
     Route: 048
     Dates: end: 20030719
  9. MOBIC [Suspect]
     Dosage: UNK
  10. PENICILLIN [Suspect]
     Dosage: UNK

REACTIONS (4)
  - LIP SWELLING [None]
  - ANGIOEDEMA [None]
  - DRUG HYPERSENSITIVITY [None]
  - SWOLLEN TONGUE [None]
